FAERS Safety Report 9751600 (Version 2)
Quarter: 2014Q1

REPORT INFORMATION
  Report Type: Spontaneous
  Country: US (occurrence: US)
  Receive Date: 20131212
  Receipt Date: 20140317
  Transmission Date: 20141002
  Serious: Yes (Death, Other)
  Sender: FDA-Public Use
  Company Number: US-GILEAD-2013-0089759

PATIENT
  Sex: Male

DRUGS (3)
  1. LETAIRIS [Suspect]
     Indication: PULMONARY HYPERTENSION
     Dosage: 10 MG, UNK
     Route: 048
     Dates: start: 20130830
  2. LETAIRIS [Suspect]
     Indication: RIGHT VENTRICULAR FAILURE
  3. LETAIRIS [Suspect]
     Indication: TRICUSPID VALVE STENOSIS

REACTIONS (2)
  - Renal failure [Fatal]
  - Cardiac failure congestive [Fatal]
